FAERS Safety Report 13028788 (Version 1)
Quarter: 2016Q4

REPORT INFORMATION
  Report Type: Spontaneous
  Country: MX (occurrence: MX)
  Receive Date: 20161214
  Receipt Date: 20161214
  Transmission Date: 20170207
  Serious: Yes (Death, Hospitalization)
  Sender: FDA-Public Use
  Company Number: MX-BIOMARINAP-MX-2016-109124

PATIENT
  Age: 14 Year
  Sex: Female

DRUGS (1)
  1. ALDURAZYME [Suspect]
     Active Substance: LARONIDASE
     Indication: MUCOPOLYSACCHARIDOSIS I
     Route: 042

REACTIONS (5)
  - Oxygen saturation decreased [Not Recovered/Not Resolved]
  - Respiratory disorder [Recovering/Resolving]
  - Cardiac murmur [Fatal]
  - Renal failure [Fatal]
  - Pneumonia [Fatal]
